FAERS Safety Report 23353224 (Version 1)
Quarter: 2023Q4

REPORT INFORMATION
  Report Type: Report from Study
  Country: NL (occurrence: NL)
  Receive Date: 20231230
  Receipt Date: 20231230
  Transmission Date: 20240110
  Serious: Yes (Death)
  Sender: FDA-Public Use
  Company Number: NL-002147023-NVSC2023NL276232

PATIENT
  Sex: Male

DRUGS (2)
  1. LEQVIO [Suspect]
     Active Substance: INCLISIRAN SODIUM
     Indication: Cardiovascular disorder
     Dosage: UNK, QMO
     Route: 058
  2. LEQVIO [Suspect]
     Active Substance: INCLISIRAN SODIUM
     Indication: Drug intolerance

REACTIONS (2)
  - Discomfort [Fatal]
  - Off label use [Unknown]
